FAERS Safety Report 6785198-2 (Version None)
Quarter: 2010Q2

REPORT INFORMATION
  Report Type: 
  Country: None (occurrence: None)
  Receive Date: 20100622
  Receipt Date: 20100611
  Transmission Date: 20101027
  Serious: Yes (Hospitalization)
  Sender: FDA-Public Use
  Company Number: US-JNJCH-2010011102

PATIENT
  Age: 6 Year
  Sex: Female
  Weight: 30.4 kg

DRUGS (6)
  1. CHILDREN'S BENADRYL ALLERGY [Suspect]
     Indication: NASOPHARYNGITIS
     Dosage: TEXT:4ML 2X
     Route: 048
  2. CHILDREN'S MOTRIN [Suspect]
     Indication: NASOPHARYNGITIS
     Dosage: TEXT:4ML 2X
     Route: 048
     Dates: start: 20100430
  3. TRIAMINIC SRT [Suspect]
     Indication: DRUG USE FOR UNKNOWN INDICATION
     Dosage: TEXT:UNKNOWN
     Route: 048
  4. ADDERALL 10 [Concomitant]
     Indication: DRUG USE FOR UNKNOWN INDICATION
     Dosage: TEXT:UNKNOWN
     Route: 065
  5. SINGULAIR ^DIECKMANN^ [Concomitant]
     Indication: DRUG USE FOR UNKNOWN INDICATION
     Dosage: TEXT:UNKNOWN
     Route: 065
  6. PROPAVAN [Concomitant]
     Indication: DRUG USE FOR UNKNOWN INDICATION
     Dosage: TEXT:UNKNOWN
     Route: 065

REACTIONS (4)
  - DYSPNOEA [None]
  - HEART RATE INCREASED [None]
  - OFF LABEL USE [None]
  - PRODUCT QUALITY ISSUE [None]
